FAERS Safety Report 4940268-6 (Version None)
Quarter: 2006Q1

REPORT INFORMATION
  Report Type: 
  Country: None (occurrence: None)
  Receive Date: 20060310
  Receipt Date: 20030605
  Transmission Date: 20060701
  Serious: Yes (Hospitalization, Disabling, Other)
  Sender: FDA-Public Use
  Company Number: US-MERCK-0306USA00871

PATIENT
  Age: 69 Year
  Sex: Male
  Weight: 84 kg

DRUGS (3)
  1. VIOXX [Suspect]
     Indication: MONARTHRITIS
     Route: 048
     Dates: start: 20010122, end: 20010220
  2. TYLENOL W/ CODEINE NO. 4 [Concomitant]
     Route: 048
     Dates: start: 20010122
  3. DOXY 100 [Concomitant]
     Indication: URETHRITIS
     Route: 048
     Dates: start: 20010122, end: 20010201

REACTIONS (14)
  - ACUTE SINUSITIS [None]
  - ADVERSE EVENT [None]
  - ANGINA PECTORIS [None]
  - ARRHYTHMIA [None]
  - BRONCHITIS ACUTE [None]
  - CHEST PAIN [None]
  - CORONARY ARTERY DISEASE [None]
  - CORONARY ARTERY OCCLUSION [None]
  - HAEMORRHOIDS [None]
  - HYPERTENSION [None]
  - LABYRINTHITIS [None]
  - ONYCHOMYCOSIS [None]
  - PERIPHERAL VASCULAR DISORDER [None]
  - SKIN EXFOLIATION [None]
